FAERS Safety Report 21344759 (Version 1)
Quarter: 2022Q3

REPORT INFORMATION
  Report Type: Spontaneous
  Country: US (occurrence: None)
  Receive Date: 20220916
  Receipt Date: 20220916
  Transmission Date: 20221027
  Serious: Yes (Death)
  Sender: FDA-Public Use
  Company Number: None

PATIENT
  Age: 70 Year
  Sex: Female
  Weight: 63.5 kg

DRUGS (2)
  1. CITROMA [Suspect]
     Active Substance: MAGNESIUM CITRATE
     Indication: Constipation
     Dosage: OTHER QUANTITY : 10 OUNCES;?FREQUENCY : AS NEEDED;?
     Route: 048
  2. DEVICE [Suspect]
     Active Substance: DEVICE
     Dates: start: 20200715, end: 20201215

REACTIONS (5)
  - Recalled product administered [None]
  - Disease complication [None]
  - Infection [None]
  - Device related infection [None]
  - Product contamination microbial [None]

NARRATIVE: CASE EVENT DATE: 20200815
